FAERS Safety Report 9367991 (Version 1)
Quarter: 2013Q2

REPORT INFORMATION
  Report Type: Spontaneous
  Country: US (occurrence: US)
  Receive Date: 20130625
  Receipt Date: 20130625
  Transmission Date: 20140414
  Serious: No
  Sender: FDA-Public Use
  Company Number: US-ASTELLAS-2013US002294

PATIENT
  Sex: Male

DRUGS (4)
  1. VESICARE [Suspect]
     Indication: POLLAKIURIA
     Dosage: 10 MG, UID/QD
     Route: 048
     Dates: start: 201211
  2. VESICARE [Suspect]
     Dosage: 10 MG CUT IN HALF
     Route: 048
  3. TERAZOSIN [Concomitant]
     Indication: POLLAKIURIA
     Dosage: UNK
     Route: 065
  4. FINASTERIDE [Concomitant]
     Indication: POLLAKIURIA
     Dosage: UNK
     Route: 065

REACTIONS (4)
  - Wrong technique in drug usage process [Unknown]
  - Drug ineffective [Recovered/Resolved]
  - Treatment noncompliance [Unknown]
  - Nocturia [Unknown]
